FAERS Safety Report 21218155 (Version 1)
Quarter: 2022Q3

REPORT INFORMATION
  Report Type: Spontaneous
  Country: CN (occurrence: CN)
  Receive Date: 20220816
  Receipt Date: 20220816
  Transmission Date: 20221026
  Serious: Yes (Hospitalization)
  Sender: FDA-Public Use
  Company Number: CN-BAYER-2022A112030

PATIENT
  Age: 64 Year
  Sex: Female
  Weight: 37 kg

DRUGS (2)
  1. STIVARGA [Suspect]
     Active Substance: REGORAFENIB
     Indication: Rectal cancer
     Dosage: 40 MG, QD
     Route: 048
     Dates: start: 20220720, end: 20220725
  2. STIVARGA [Suspect]
     Active Substance: REGORAFENIB
     Indication: Postoperative care
     Dosage: 80 MG, QD
     Route: 048
     Dates: start: 20220726, end: 20220728

REACTIONS (8)
  - Pyrexia [Recovered/Resolved]
  - Diarrhoea [Recovered/Resolved]
  - Myelosuppression [Recovered/Resolved]
  - Hypokalaemia [Recovering/Resolving]
  - Infection [Recovering/Resolving]
  - Asthenia [None]
  - Decreased appetite [None]
  - Off label use [None]

NARRATIVE: CASE EVENT DATE: 20220720
